FAERS Safety Report 16275948 (Version 2)
Quarter: 2019Q3

REPORT INFORMATION
  Report Type: Report from Study
  Country: US (occurrence: US)
  Receive Date: 20190505
  Receipt Date: 20190801
  Transmission Date: 20191004
  Serious: No
  Sender: FDA-Public Use
  Company Number: PHEH2019US018647

PATIENT
  Sex: Male

DRUGS (1)
  1. COSENTYX [Suspect]
     Active Substance: SECUKINUMAB
     Indication: PSORIASIS
     Dosage: 300 MG, QW  (QW FOR 5 WEEKS AND THEN Q4W)
     Route: 058
     Dates: start: 20190517

REACTIONS (1)
  - Drug ineffective [Not Recovered/Not Resolved]
